FAERS Safety Report 5258953-8 (Version None)
Quarter: 2007Q1

REPORT INFORMATION
  Report Type: 
  Country: None (occurrence: None)
  Receive Date: 20061117
  Receipt Date: 20051116
  Transmission Date: 20070707
  Serious: Yes (Hospitalization)
  Sender: FDA-Public Use
  Company Number: US-JNJFOC-20051104577

PATIENT
  Age: 64 Year
  Sex: Male

DRUGS (7)
  1. LEVAQUIN [Suspect]
     Indication: ANTIBIOTIC PROPHYLAXIS
     Dates: start: 20051013, end: 20051015
  2. FOLIC ACID [Concomitant]
  3. VITAMN B-12 (CYANOCOBALAMIN) [Concomitant]
  4. FUROSEMIDE [Concomitant]
  5. POTASSIUM (POTASSIUM) [Concomitant]
  6. UBIDECARENONE (UBIDECARENONE) [Concomitant]
  7. DIGOXIN [Concomitant]

REACTIONS (1)
  - STEVENS-JOHNSON SYNDROME [None]
